FAERS Safety Report 6867198-7 (Version None)
Quarter: 2010Q3

REPORT INFORMATION
  Report Type: 
  Country: None (occurrence: None)
  Receive Date: 20100722
  Receipt Date: 20100715
  Transmission Date: 20110219
  Serious: Yes (Hospitalization)
  Sender: FDA-Public Use
  Company Number: B0664675A

PATIENT
  Sex: Female

DRUGS (3)
  1. ARIXTRA [Suspect]
     Indication: THROMBOSIS PROPHYLAXIS
     Dosage: 2.5MG PER DAY
     Route: 058
     Dates: start: 20100614, end: 20100623
  2. LOXONIN [Concomitant]
     Dosage: 180MG PER DAY
     Route: 048
  3. GASTER [Concomitant]
     Dosage: 20MG PER DAY
     Route: 048

REACTIONS (2)
  - ANAEMIA [None]
  - SWELLING [None]
